FAERS Safety Report 16508101 (Version 1)
Quarter: 2019Q3

REPORT INFORMATION
  Report Type: Spontaneous
  Country: US (occurrence: US)
  Receive Date: 20190702
  Receipt Date: 20190702
  Transmission Date: 20191004
  Serious: No
  Sender: FDA-Public Use
  Company Number: US-ROCHE-2120668

PATIENT
  Age: 65 Year
  Sex: Female
  Weight: 52.66 kg

DRUGS (3)
  1. MODAFINIL. [Concomitant]
     Active Substance: MODAFINIL
     Indication: SOMNOLENCE
     Route: 065
  2. IBRANCE [Suspect]
     Active Substance: PALBOCICLIB
     Indication: BREAST CANCER METASTATIC
     Route: 065
  3. XELODA [Suspect]
     Active Substance: CAPECITABINE
     Indication: BREAST CANCER METASTATIC
     Dosage: 2 TAB TWICE DAILY X 7 DAYS AND THEN 1 WEEK OFF
     Route: 048
     Dates: start: 201801

REACTIONS (6)
  - Somnolence [Not Recovered/Not Resolved]
  - Blister [Unknown]
  - Dry skin [Unknown]
  - Burning sensation [Unknown]
  - Depression [Not Recovered/Not Resolved]
  - Sleep attacks [Recovered/Resolved]

NARRATIVE: CASE EVENT DATE: 20180503
